FAERS Safety Report 7401765-7 (Version None)
Quarter: 2011Q2

REPORT INFORMATION
  Report Type: 
  Country: None (occurrence: None)
  Receive Date: 20110408
  Receipt Date: 20110404
  Transmission Date: 20111010
  Serious: No
  Sender: FDA-Public Use
  Company Number: US-PFIZER INC-2011074308

PATIENT
  Sex: Female
  Weight: 56.689 kg

DRUGS (3)
  1. ADVIL CONGESTION RELIEF [Suspect]
     Indication: NASAL CONGESTION
  2. ADVIL CONGESTION RELIEF [Suspect]
     Indication: SINUS HEADACHE
     Dosage: 400 MG, 1X/DAY
     Route: 048
     Dates: start: 20110327, end: 20110331
  3. ADVIL CONGESTION RELIEF [Suspect]

REACTIONS (1)
  - DRUG INEFFECTIVE [None]
